FAERS Safety Report 17604407 (Version 2)
Quarter: 2020Q2

REPORT INFORMATION
  Report Type: Spontaneous
  Country: JP (occurrence: JP)
  Receive Date: 20200331
  Receipt Date: 20200624
  Transmission Date: 20200713
  Serious: No
  Sender: FDA-Public Use
  Company Number: JP-AMGEN-JPNSP2020051362

PATIENT
  Age: 83 Year
  Sex: Male

DRUGS (3)
  1. G-LASTA [Suspect]
     Active Substance: PEGFILGRASTIM
     Indication: PRODUCT USED FOR UNKNOWN INDICATION
     Dosage: 3.6 MG, 1X/WEEK (USE IN THE REGIMEN OF EVERY OTHER WEEK)
     Route: 058
  2. IRINOTECAN HYDROCHLORIDE. [Concomitant]
     Active Substance: IRINOTECAN HYDROCHLORIDE
     Indication: PRODUCT USED FOR UNKNOWN INDICATION
     Dosage: UNK UNK, QWK (1X/WEEK, THREE-WEEKS ON AND ONE-WEEK OFF)
     Route: 065
  3. IRINOTECAN HYDROCHLORIDE. [Concomitant]
     Active Substance: IRINOTECAN HYDROCHLORIDE
     Indication: METASTATIC GASTRIC CANCER
     Dosage: 126 MG, 1X/WEEK (THREE-WEEKS ON AND ONE-WEEK OFF)
     Route: 065
     Dates: start: 20200311, end: 20200325

REACTIONS (2)
  - Off label use [Unknown]
  - Chemotherapy [Unknown]
